FAERS Safety Report 6341542-1 (Version None)
Quarter: 2009Q3

REPORT INFORMATION
  Report Type: 
  Country: None (occurrence: None)
  Receive Date: 20090902
  Receipt Date: 20090902
  Transmission Date: 20100115
  Serious: Yes (Other)
  Sender: FDA-Public Use
  Company Number: None

PATIENT
  Age: 50 Year
  Sex: Female
  Weight: 58.9676 kg

DRUGS (7)
  1. FOSAMAX [Suspect]
     Indication: OSTEOPOROSIS
     Dosage: 1 TABLET WEEKLY PO
     Route: 048
     Dates: start: 20090505, end: 20090823
  2. TEGRETOL [Concomitant]
  3. KLONOPIN [Concomitant]
  4. LISINOPRIL AND HYDROCHLOROTHIAZIDE [Concomitant]
  5. NORVASC [Concomitant]
  6. CALCIUM +D [Concomitant]
  7. . [Concomitant]

REACTIONS (3)
  - ARTHRALGIA [None]
  - BONE PAIN [None]
  - MYALGIA [None]
